FAERS Safety Report 4712989-1 (Version None)
Quarter: 2005Q3

REPORT INFORMATION
  Report Type: 
  Country: None (occurrence: None)
  Receive Date: 20050711
  Receipt Date: 20050703
  Transmission Date: 20060218
  Serious: Yes (Death)
  Sender: FDA-Public Use
  Company Number: PHO-2005-008

PATIENT
  Age: 76 Year
  Sex: Male

DRUGS (1)
  1. PHOTOFRIN [Suspect]
     Indication: MALIGNANT HEPATOBILIARY NEOPLASM
     Dosage: 180 MG I.V.
     Route: 042
     Dates: start: 20050309, end: 20050309

REACTIONS (5)
  - ASTHENIA [None]
  - DEPRESSION [None]
  - LETHARGY [None]
  - ORAL INTAKE REDUCED [None]
  - REFUSAL OF TREATMENT BY PATIENT [None]
